FAERS Safety Report 8767850 (Version 5)
Quarter: 2016Q3

REPORT INFORMATION
  Report Type: Spontaneous
  Country: JP (occurrence: JP)
  Receive Date: 20120905
  Receipt Date: 20160914
  Transmission Date: 20161109
  Serious: Yes (Other)
  Sender: FDA-Public Use
  Company Number: PHHY2012JP074920

PATIENT
  Age: 42 Year
  Weight: 47.9 kg

DRUGS (7)
  1. LEVOFLOXACIN. [Suspect]
     Active Substance: LEVOFLOXACIN
     Indication: TUBERCULOUS PLEURISY
     Route: 065
  2. PYRAMIDE [Suspect]
     Active Substance: PYRAZINAMIDE
     Indication: TUBERCULOUS PLEURISY
     Dosage: 1 G, QD
     Route: 048
     Dates: start: 20110618
  3. PYRIDOXAL PHOSPHATE [Suspect]
     Active Substance: PYRIDOXAL PHOSPHATE
     Indication: PRODUCT USED FOR UNKNOWN INDICATION
     Dosage: 10 MG, TID
     Route: 048
     Dates: start: 20110618
  4. RIFAMPICIN SANDOZ [Suspect]
     Active Substance: RIFAMPIN
     Indication: TUBERCULOUS PLEURISY
     Dosage: 450 MG, QD
     Route: 048
     Dates: start: 20110618, end: 20110705
  5. ESANBUTOL [Suspect]
     Active Substance: ETHAMBUTOL HYDROCHLORIDE
     Indication: TUBERCULOUS PLEURISY
     Dosage: 750 MG, QD
     Route: 048
     Dates: start: 20110618
  6. ISCOTIN [Suspect]
     Active Substance: ISONIAZID
     Indication: TUBERCULOUS PLEURISY
     Dosage: 250 MG, QD
     Route: 048
     Dates: start: 20110618
  7. RIFAMPICIN SANDOZ [Suspect]
     Active Substance: RIFAMPIN
     Dosage: 450 MG, QD
     Route: 048
     Dates: start: 20110809, end: 20110810

REACTIONS (8)
  - Pleurocutaneous fistula [Recovered/Resolved]
  - Pyrexia [Recovered/Resolved]
  - Tuberculosis [Recovered/Resolved]
  - Hepatic function abnormal [Recovered/Resolved]
  - Chest pain [Recovered/Resolved]
  - Lip swelling [Recovered/Resolved]
  - Swelling [Recovered/Resolved]
  - Vomiting [Recovered/Resolved]

NARRATIVE: CASE EVENT DATE: 20110705
